FAERS Safety Report 10061168 (Version 2)
Quarter: 2014Q2

REPORT INFORMATION
  Report Type: Spontaneous
  Country: US (occurrence: US)
  Receive Date: 20140407
  Receipt Date: 20140422
  Transmission Date: 20141212
  Serious: Yes (Other)
  Sender: FDA-Public Use
  Company Number: US-AMGEN-USASP2014023289

PATIENT
  Age: 58 Year
  Sex: Female

DRUGS (8)
  1. ENBREL [Suspect]
     Indication: PSORIASIS
     Dosage: UNK
     Route: 065
  2. DOXYCYCLINE [Suspect]
     Indication: PRODUCT USED FOR UNKNOWN INDICATION
     Dosage: FOR 2 WEEKS
     Route: 065
  3. LISINOPRIL [Concomitant]
     Dosage: 2.5MG AT BEDTIME
  4. VITAMIN B COMPLEX                  /00003501/ [Concomitant]
     Dosage: UNK
  5. DIPHENHYDRAMINE [Concomitant]
     Dosage: UNK UNK, QD
  6. NAPROXEN [Concomitant]
     Dosage: AS NECESSARY
  7. METHOTREXATE [Concomitant]
     Dosage: UNK
  8. PREDNISONE [Concomitant]
     Dosage: UNK

REACTIONS (4)
  - Dyspnoea [Recovered/Resolved]
  - Rash generalised [Recovering/Resolving]
  - Diarrhoea [Recovered/Resolved]
  - Eyelid oedema [Recovered/Resolved]
